FAERS Safety Report 9765325 (Version 2)
Quarter: 2014Q1

REPORT INFORMATION
  Report Type: Spontaneous
  Country: US (occurrence: US)
  Receive Date: 20131217
  Receipt Date: 20140207
  Transmission Date: 20141002
  Serious: No
  Sender: FDA-Public Use
  Company Number: US-BIOGENIDEC-2013BI112555

PATIENT
  Age: 57 Year
  Sex: Female

DRUGS (5)
  1. TECFIDERA [Suspect]
     Indication: MULTIPLE SCLEROSIS
     Route: 048
     Dates: start: 20131009, end: 20131111
  2. SYNTHROID [Concomitant]
  3. CLONAZEPAM [Concomitant]
  4. TOVIAZ [Concomitant]
  5. PREMARIN [Concomitant]

REACTIONS (2)
  - Urticaria [Recovered/Resolved]
  - Wheezing [Unknown]
